FAERS Safety Report 7811843-6 (Version None)
Quarter: 2011Q4

REPORT INFORMATION
  Report Type: 
  Country: None (occurrence: None)
  Receive Date: 20111013
  Receipt Date: 20110929
  Transmission Date: 20120403
  Serious: Yes (Other)
  Sender: FDA-Public Use
  Company Number: GB-MYLANLABS-2011S1019100

PATIENT
  Age: 31 Year
  Sex: Male

DRUGS (2)
  1. FLUOXETINE [Suspect]
  2. FLUOXETINE [Suspect]
     Indication: MYASTHENIC SYNDROME

REACTIONS (2)
  - OFF LABEL USE [None]
  - DRUG INTOLERANCE [None]
